FAERS Safety Report 7460436-1 (Version None)
Quarter: 2011Q2

REPORT INFORMATION
  Report Type: 
  Country: None (occurrence: None)
  Receive Date: 20110505
  Receipt Date: 20110427
  Transmission Date: 20111010
  Serious: Yes (Disabling)
  Sender: FDA-Public Use
  Company Number: B0716468A

PATIENT
  Sex: Female
  Weight: 18.8 kg

DRUGS (4)
  1. ALKERAN [Suspect]
     Indication: STEM CELL TRANSPLANT
     Dosage: 70MGM2 PER DAY
     Route: 042
     Dates: start: 20020425, end: 20020426
  2. ALKERAN [Suspect]
     Dosage: 70MGM2 PER DAY
     Route: 042
     Dates: start: 20020501, end: 20020502
  3. THIOTEPA [Suspect]
     Indication: STEM CELL TRANSPLANT
     Dosage: 200MGM2 PER DAY
     Route: 042
     Dates: start: 20020425, end: 20020426
  4. THIOTEPA [Suspect]
     Dosage: 200MGM2 PER DAY
     Route: 042
     Dates: start: 20020501, end: 20020502

REACTIONS (3)
  - DECREASED APPETITE [None]
  - C-REACTIVE PROTEIN INCREASED [None]
  - OROPHARYNGEAL PAIN [None]
